FAERS Safety Report 18242661 (Version 3)
Quarter: 2020Q3

REPORT INFORMATION
  Report Type: Spontaneous
  Country: US (occurrence: US)
  Receive Date: 20200908
  Receipt Date: 20200925
  Transmission Date: 20201103
  Serious: No
  Sender: FDA-Public Use
  Company Number: US-GLAXOSMITHKLINE-US2020AMR178046

PATIENT
  Sex: Female

DRUGS (3)
  1. ZEJULA [Suspect]
     Active Substance: NIRAPARIB
     Indication: OVARIAN CANCER
     Dosage: 200 MG, QD
     Route: 048
     Dates: start: 20200813
  2. ZEJULA [Suspect]
     Active Substance: NIRAPARIB
     Dosage: 200 MG, QD
     Dates: start: 202008
  3. ZEJULA [Suspect]
     Active Substance: NIRAPARIB
     Dosage: 1 DF

REACTIONS (7)
  - Nausea [Unknown]
  - Malaise [Unknown]
  - Product dose omission issue [Unknown]
  - Insomnia [Unknown]
  - Vomiting [Unknown]
  - Incorrect dose administered [Unknown]
  - Dysphagia [Unknown]
